FAERS Safety Report 20442752 (Version 2)
Quarter: 2022Q1

REPORT INFORMATION
  Report Type: Report from Study
  Country: US (occurrence: US)
  Receive Date: 20220208
  Receipt Date: 20220211
  Transmission Date: 20220423
  Serious: No
  Sender: FDA-Public Use
  Company Number: US-NOVARTISTESTPH-NVSC2022US026487

PATIENT
  Sex: Female

DRUGS (1)
  1. KISQALI [Suspect]
     Active Substance: RIBOCICLIB
     Indication: Breast cancer
     Dosage: 600 MG, QD
     Route: 048

REACTIONS (7)
  - COVID-19 [Recovering/Resolving]
  - Arthralgia [Recovered/Resolved]
  - Lung disorder [Recovering/Resolving]
  - Dyspnoea [Recovering/Resolving]
  - Back pain [Recovered/Resolved]
  - Fatigue [Not Recovered/Not Resolved]
  - White blood cell count decreased [Not Recovered/Not Resolved]
